FAERS Safety Report 16063317 (Version 1)
Quarter: 2019Q1

REPORT INFORMATION
  Report Type: Report from Study
  Country: US (occurrence: US)
  Receive Date: 20190312
  Receipt Date: 20190312
  Transmission Date: 20190418
  Serious: Yes (Disabling)
  Sender: FDA-Public Use
  Company Number: US-SA-2019SA034371

PATIENT
  Age: 59 Year
  Sex: Female

DRUGS (2)
  1. INSULIN GLARGINE [Suspect]
     Active Substance: INSULIN GLARGINE
     Dosage: 75 U, BID
     Route: 058
  2. INSULIN GLARGINE [Suspect]
     Active Substance: INSULIN GLARGINE
     Indication: DIABETES MELLITUS
     Dosage: 150 U, QD
     Route: 058
     Dates: start: 20180129

REACTIONS (4)
  - Nasopharyngitis [Not Recovered/Not Resolved]
  - Disability [Not Recovered/Not Resolved]
  - Inability to afford medication [Unknown]
  - Inappropriate schedule of product administration [Unknown]
